FAERS Safety Report 7717404-1 (Version None)
Quarter: 2011Q3

REPORT INFORMATION
  Report Type: 
  Country: None (occurrence: None)
  Receive Date: 20110830
  Receipt Date: 20110822
  Transmission Date: 20111222
  Serious: Yes (Hospitalization, Other)
  Sender: FDA-Public Use
  Company Number: US-JNJFOC-20110807655

PATIENT
  Sex: Female

DRUGS (29)
  1. LEVAQUIN [Suspect]
     Indication: PRODUCT USED FOR UNKNOWN INDICATION
     Route: 065
  2. NORVASC [Suspect]
     Route: 048
     Dates: start: 20100719, end: 20100721
  3. NORVASC [Suspect]
     Route: 048
     Dates: start: 19970101
  4. DILANTIN [Suspect]
     Indication: PRODUCT USED FOR UNKNOWN INDICATION
     Route: 065
     Dates: start: 19960101
  5. LISINOPRIL [Suspect]
     Indication: PRODUCT USED FOR UNKNOWN INDICATION
     Route: 065
  6. LOSARTAN POTASSIUM [Suspect]
     Indication: PRODUCT USED FOR UNKNOWN INDICATION
     Route: 065
  7. DEPAKOTE [Suspect]
     Indication: CONVULSION
     Route: 065
     Dates: start: 19960101
  8. AVAPRO [Suspect]
     Indication: HYPERTENSION
     Route: 065
  9. BENICAR [Suspect]
     Indication: HYPERTENSION
     Route: 048
     Dates: start: 20070101
  10. CARDIZEM [Suspect]
     Indication: PRODUCT USED FOR UNKNOWN INDICATION
     Route: 065
  11. LIDOCAINE [Suspect]
     Indication: ANAESTHESIA
     Route: 065
     Dates: start: 20100513, end: 20100513
  12. XANAX [Suspect]
     Indication: PRODUCT USED FOR UNKNOWN INDICATION
     Dosage: 0.5 (UNITS UNSPECIFIED)
     Route: 065
  13. HYDROCHLOROTHIAZIDE [Suspect]
     Indication: PRODUCT USED FOR UNKNOWN INDICATION
     Route: 065
  14. ATACAND [Suspect]
     Route: 065
  15. NORVASC [Suspect]
     Indication: HYPERTENSION
     Dosage: 5MG IN HALF
     Route: 048
  16. BYSTOLIC [Suspect]
     Indication: PRODUCT USED FOR UNKNOWN INDICATION
     Route: 065
  17. LIDOCAINE [Suspect]
     Indication: INGROWING NAIL
     Route: 065
     Dates: start: 20100513, end: 20100513
  18. CLONIDINE [Concomitant]
     Route: 065
  19. NORVASC [Suspect]
     Route: 048
     Dates: start: 20100101
  20. NORVASC [Suspect]
     Route: 048
     Dates: start: 19950101
  21. NORVASC [Suspect]
     Dosage: 5MG IN HALF
     Route: 048
     Dates: start: 20100722
  22. REGLAN [Suspect]
     Indication: PRODUCT USED FOR UNKNOWN INDICATION
     Route: 065
  23. DIOVAN [Suspect]
     Indication: PRODUCT USED FOR UNKNOWN INDICATION
     Route: 065
  24. LEVOTHYROXINE SODIUM [Concomitant]
     Route: 065
  25. FUROSEMIDE [Suspect]
     Indication: PRODUCT USED FOR UNKNOWN INDICATION
     Route: 065
  26. MACROBID [Suspect]
     Indication: PRODUCT USED FOR UNKNOWN INDICATION
     Route: 065
  27. CIPROFLOXACIN [Suspect]
     Indication: PRODUCT USED FOR UNKNOWN INDICATION
     Route: 065
  28. ATACAND [Suspect]
     Indication: PRODUCT USED FOR UNKNOWN INDICATION
     Route: 065
  29. BACTRIM [Suspect]
     Indication: PRODUCT USED FOR UNKNOWN INDICATION
     Route: 065

REACTIONS (10)
  - CYSTITIS [None]
  - ABDOMINAL DISTENSION [None]
  - TOE OPERATION [None]
  - BLOOD PRESSURE INCREASED [None]
  - CHOLECYSTECTOMY [None]
  - ARTERIOSCLEROSIS CORONARY ARTERY [None]
  - INGROWING NAIL [None]
  - BURNING SENSATION [None]
  - WEIGHT DECREASED [None]
  - LOSS OF CONSCIOUSNESS [None]
